FAERS Safety Report 7492386-9 (Version None)
Quarter: 2011Q2

REPORT INFORMATION
  Report Type: 
  Country: None (occurrence: None)
  Receive Date: 20110519
  Receipt Date: 20110428
  Transmission Date: 20111010
  Serious: Yes (Other)
  Sender: FDA-Public Use
  Company Number: US-BAYER-2011-016509

PATIENT
  Age: 39 Year
  Sex: Female
  Weight: 70 kg

DRUGS (7)
  1. YAZ [Suspect]
     Indication: ENDOMETRIOSIS
  2. NORTRIPTYLINE HCL [Concomitant]
     Dosage: 10 MG, TID
  3. YAZ [Suspect]
     Indication: PREMENSTRUAL SYNDROME
  4. NAPROXEN SODIUM W/PSEUDOEPHEDRINE HCL [Concomitant]
     Indication: NECK PAIN
  5. NAPROXEN (ALEVE) [Concomitant]
  6. YAZ [Suspect]
     Indication: ACNE
  7. CENTRUM [Concomitant]
     Dosage: UNK UNK, QD

REACTIONS (2)
  - PAIN [None]
  - DEEP VEIN THROMBOSIS [None]
